FAERS Safety Report 13802116 (Version 5)
Quarter: 2017Q3

REPORT INFORMATION
  Report Type: Report from Study
  Country: US (occurrence: US)
  Receive Date: 20170727
  Receipt Date: 20170929
  Transmission Date: 20171127
  Serious: Yes (Hospitalization)
  Sender: FDA-Public Use
  Company Number: US-JNJFOC-20170721403

PATIENT
  Age: 82 Year
  Sex: Female

DRUGS (10)
  1. PRESERVISION AREDS [Concomitant]
     Active Substance: MINERALS\VITAMINS
  2. BIOTIN [Concomitant]
     Active Substance: BIOTIN
  3. MULTIVITAMINS [Concomitant]
     Active Substance: VITAMINS
  4. PLAVIX [Concomitant]
     Active Substance: CLOPIDOGREL BISULFATE
  5. ALLOPURINOL. [Concomitant]
     Active Substance: ALLOPURINOL
  6. PREDNISONE. [Concomitant]
     Active Substance: PREDNISONE
  7. IMBRUVICA [Suspect]
     Active Substance: IBRUTINIB
     Indication: CHRONIC LYMPHOCYTIC LEUKAEMIA
     Dosage: 420 MG, QD
     Route: 048
     Dates: start: 20170501
  8. LISINOPRIL. [Concomitant]
     Active Substance: LISINOPRIL
  9. IMBRUVICA [Suspect]
     Active Substance: IBRUTINIB
     Indication: CHRONIC LYMPHOCYTIC LEUKAEMIA
     Route: 048
     Dates: start: 20150811, end: 20170821
  10. ATENOLOL. [Concomitant]
     Active Substance: ATENOLOL

REACTIONS (5)
  - Haemoglobin decreased [Unknown]
  - Urinary tract infection [Recovered/Resolved with Sequelae]
  - Calculus bladder [Not Recovered/Not Resolved]
  - Drug ineffective [Unknown]
  - Malaise [Unknown]

NARRATIVE: CASE EVENT DATE: 201705
